FAERS Safety Report 14535718 (Version 1)
Quarter: 2018Q1

REPORT INFORMATION
  Report Type: Spontaneous
  Country: US (occurrence: US)
  Receive Date: 20180215
  Receipt Date: 20180215
  Transmission Date: 20180509
  Serious: No
  Sender: FDA-Public Use
  Company Number: US-TEVA-2018-US-858221

PATIENT
  Sex: Female

DRUGS (1)
  1. NORETHINDRONE. [Suspect]
     Active Substance: NORETHINDRONE
     Indication: ENDOMETRIOSIS
     Route: 065
     Dates: start: 2015

REACTIONS (2)
  - Swelling [Not Recovered/Not Resolved]
  - Respiration abnormal [Not Recovered/Not Resolved]

NARRATIVE: CASE EVENT DATE: 2015
